FAERS Safety Report 5168331-8 (Version None)
Quarter: 2006Q4

REPORT INFORMATION
  Report Type: 
  Country: None (occurrence: None)
  Receive Date: 20061208
  Receipt Date: 20061004
  Transmission Date: 20070319
  Serious: Yes (Life-Threatening)
  Sender: FDA-Public Use
  Company Number: JP-ROCHE-466555

PATIENT
  Age: 45 Year
  Sex: Male
  Weight: 166 kg

DRUGS (30)
  1. VESANOID [Suspect]
     Route: 048
     Dates: start: 20060220, end: 20060320
  2. MODACIN [Concomitant]
     Dosage: THIS SAME DOSE WAS GIVEN AGAIN FROM 06 MARCH 2006 TILL 14 MARCH 2006.
     Route: 042
     Dates: start: 20060220, end: 20060303
  3. AMIKACIN SULFATE [Concomitant]
     Dosage: THE PATIENT RECEIVED THE SAME DOSE FROM 06 MARCH 2006 TILL 14 MARCH 2006.
     Route: 042
     Dates: start: 20060222, end: 20060303
  4. BIAPENEM [Concomitant]
     Dosage: REPORTED AS OMEGACIN (BIAPENEM). THE PATIENT RECEIVED 0.6 GRAM PER DAY FORM 18 APR 2006 UNTIL 27 AP+
     Route: 042
     Dates: start: 20060315, end: 20060327
  5. HABEKACIN [Concomitant]
     Route: 042
     Dates: start: 20060316, end: 20060331
  6. FUNGUARD [Concomitant]
     Route: 042
     Dates: start: 20060320, end: 20060331
  7. REMINARON [Concomitant]
     Dosage: THE PATIENT RECEIVED THE SAME DOSE FORM 01 APR 2006 UNTIL 07 APR 2006.
     Route: 042
     Dates: start: 20060220, end: 20060317
  8. CYLOCIDE [Concomitant]
     Route: 042
     Dates: start: 20060303, end: 20060308
  9. DAUNOMYCIN [Concomitant]
     Dosage: THE SAME DOSE WAS REPEATED FROM 19 MARCH 2006 TILL 20 MARCH 2006.
     Route: 042
     Dates: start: 20060304, end: 20060305
  10. NASEA [Concomitant]
     Dosage: THE SAME DOSE WAS RE-ADMINISTERED FROM 19 MARCH 2006 TILL 20 MAR 2006.
     Route: 042
     Dates: start: 20060303, end: 20060308
  11. PREDONINE [Concomitant]
     Route: 042
     Dates: start: 20060303, end: 20060308
  12. GASTER [Concomitant]
     Route: 042
     Dates: start: 20060305, end: 20060306
  13. LASIX [Concomitant]
     Route: 042
     Dates: start: 20060221, end: 20060313
  14. NEO-MINOPHAGEN C [Concomitant]
     Dosage: THE PATIENT RECEIVED 4 DOSE FORMS PER DAY FROM 24 APR 2006 TO 02 MAY 2006.
     Route: 042
     Dates: start: 20060228, end: 20060313
  15. SOLU-MEDROL [Concomitant]
     Dosage: ROUTE REPORTED AS INTRAVENOUS DRIP.
     Route: 042
     Dates: start: 20060227, end: 20060301
  16. MENAMIN [Concomitant]
     Route: 042
     Dates: start: 20060220, end: 20060417
  17. ROPION [Concomitant]
     Route: 042
     Dates: start: 20060315, end: 20060327
  18. MEYLON [Concomitant]
     Dosage: THE PATIENT RECEIVED A DOSE OF 120 ML PER DAY FROM 04 MAR 2006 TO 01 APR 2006. HE RECEIVED 40 ML PE+
     Route: 042
     Dates: start: 20060220, end: 20060303
  19. ADONA [Concomitant]
     Dosage: SAME DOSE WAS REPEATED FROM 04 MARCH 2006 TILL 01 APRIL 2006.
     Route: 042
     Dates: start: 20060220, end: 20060302
  20. SOLITA-T3 [Concomitant]
     Dosage: ROUTE REPORTED AS INTRAVENOUS DRIP. THE PATIENT RECEIVED 1000 ML PER DAY FROM 10 MAR 2006 UNTIL 01 +
     Route: 042
     Dates: start: 20060220, end: 20060303
  21. FUNGIZONE [Concomitant]
     Route: 048
     Dates: start: 20060220, end: 20060331
  22. POLYMYXIN B SULFATE [Concomitant]
     Route: 048
     Dates: start: 20060220, end: 20060331
  23. LANSOPRAZOLE [Concomitant]
     Dosage: TAKEPRON WAS RESTARTED ON 17 APR 2006.
     Route: 048
     Dates: start: 20060220, end: 20060331
  24. ALLOPURINOL [Concomitant]
     Route: 048
     Dates: start: 20060220, end: 20060331
  25. BACTRIM [Concomitant]
     Route: 048
     Dates: start: 20060220, end: 20060331
  26. 1 CONCOMITANT DRUG [Concomitant]
     Dosage: REPORTED AS MALFA
     Route: 048
     Dates: start: 20060317
  27. NERIPROCT [Concomitant]
     Dosage: REPORTED AS NERIPROCT OINTMENT.
     Route: 061
     Dates: start: 20060301, end: 20060318
  28. ALLOID [Concomitant]
     Route: 048
     Dates: start: 20060317
  29. POSTERISAN [Concomitant]
     Route: 061
     Dates: start: 20060319, end: 20060518
  30. SUCRALFATE [Concomitant]
     Dosage: REPORTED AS ULCERLMIN FINE GRANULE (SUCRALFATE).
     Route: 048
     Dates: start: 20060220, end: 20060331

REACTIONS (6)
  - DUODENAL PERFORATION [None]
  - INFECTION [None]
  - PYREXIA [None]
  - RETINOIC ACID SYNDROME [None]
  - SMALL INTESTINE ULCER [None]
  - UPPER GASTROINTESTINAL HAEMORRHAGE [None]
